FAERS Safety Report 10230285 (Version 3)
Quarter: 2014Q2

REPORT INFORMATION
  Report Type: Report from Study
  Country: MX (occurrence: MX)
  Receive Date: 20140611
  Receipt Date: 20140629
  Transmission Date: 20141212
  Serious: No
  Sender: FDA-Public Use
  Company Number: PHHY2013MX113176

PATIENT
  Age: 68 Year
  Sex: Male

DRUGS (4)
  1. EXFORGE HCT [Suspect]
     Indication: HYPERTENSION
     Dosage: 1 DF (320/10/25 MG), DAILY
     Route: 048
     Dates: start: 201202
  2. TYLEX (PARACETAMOL) [Concomitant]
     Indication: ARTHRALGIA
     Dosage: 1 DF (750 MG), DAILY
     Dates: start: 201206
  3. TYLEX (PARACETAMOL) [Concomitant]
     Indication: ARTHRALGIA
  4. OMEPRAZOLE [Concomitant]
     Indication: GASTRITIS
     Dosage: 1 UKN, UNK

REACTIONS (2)
  - Arthropathy [Not Recovered/Not Resolved]
  - Influenza [Recovered/Resolved]
